FAERS Safety Report 9665719 (Version 1)
Quarter: 2013Q4

REPORT INFORMATION
  Report Type: Spontaneous
  Country: US (occurrence: None)
  Receive Date: 20131031
  Receipt Date: 20131031
  Transmission Date: 20140711
  Serious: Yes (Hospitalization)
  Sender: FDA-Public Use
  Company Number: None

PATIENT
  Age: 64 Year
  Sex: Male

DRUGS (1)
  1. VANCOMYCIN [Suspect]
     Indication: WOUND INFECTION
     Route: 042
     Dates: start: 20110818, end: 20110826

REACTIONS (2)
  - Dyspnoea [None]
  - Chest discomfort [None]
